FAERS Safety Report 4276229-2 (Version None)
Quarter: 2004Q1

REPORT INFORMATION
  Report Type: 
  Country: None (occurrence: None)
  Receive Date: 20040121
  Receipt Date: 20031006
  Transmission Date: 20041129
  Serious: No
  Sender: FDA-Public Use
  Company Number: US-GLAXOSMITHKLINE-A0429371A

PATIENT
  Sex: Male

DRUGS (1)
  1. ZIAGEN [Suspect]
     Route: 065
     Dates: start: 20030301

REACTIONS (2)
  - HEADACHE [None]
  - URTICARIA [None]
